FAERS Safety Report 15334478 (Version 1)
Quarter: 2018Q3

REPORT INFORMATION
  Report Type: Spontaneous
  Country: US (occurrence: US)
  Receive Date: 20180830
  Receipt Date: 20180830
  Transmission Date: 20181010
  Serious: No
  Sender: FDA-Public Use
  Company Number: PHEH2018US034985

PATIENT
  Sex: Male
  Weight: 78 kg

DRUGS (1)
  1. TASIGNA [Suspect]
     Active Substance: NILOTINIB
     Indication: ACUTE MYELOID LEUKAEMIA
     Dosage: 300 MG, QD
     Route: 048

REACTIONS (2)
  - Wheezing [Not Recovered/Not Resolved]
  - Fluid retention [Not Recovered/Not Resolved]
